FAERS Safety Report 5085965-X (Version None)
Quarter: 2006Q3

REPORT INFORMATION
  Report Type: 
  Country: None (occurrence: None)
  Receive Date: 20060817
  Receipt Date: 20060803
  Transmission Date: 20061208
  Serious: Yes (Other)
  Sender: FDA-Public Use
  Company Number: 2006097055

PATIENT
  Age: 8 Year
  Sex: Male

DRUGS (2)
  1. ZARONTIN SYRUP [Suspect]
     Indication: EPILEPSY
     Dosage: 6 ML (3 ML, 2 IN 1 D)
  2. VALPROIC ACID [Concomitant]

REACTIONS (5)
  - DRUG DISPENSING ERROR [None]
  - EPILEPSY [None]
  - PHARMACEUTICAL PRODUCT COMPLAINT [None]
  - TOOTH DISCOLOURATION [None]
  - UNDERDOSE [None]
